FAERS Safety Report 10627428 (Version 2)
Quarter: 2015Q1

REPORT INFORMATION
  Report Type: Spontaneous
  Country: DK (occurrence: DK)
  Receive Date: 20141205
  Receipt Date: 20150129
  Transmission Date: 20150720
  Serious: Yes (Death)
  Sender: FDA-Public Use
  Company Number: DK-ACCORD-027394

PATIENT
  Age: 57 Year
  Sex: Male
  Weight: 101 kg

DRUGS (5)
  1. NORTRIPTYLINE [Concomitant]
     Active Substance: NORTRIPTYLINE
  2. MOVICOL [Concomitant]
     Active Substance: POLYETHYLENE GLYCOL 3350\POTASSIUM CHLORIDE\SODIUM BICARBONATE\SODIUM CHLORIDE
     Indication: PRODUCT USED FOR UNKNOWN INDICATION
     Route: 048
  3. OXAZEPAM. [Concomitant]
     Active Substance: OXAZEPAM
  4. AMIODARONE [Concomitant]
     Active Substance: AMIODARONE
  5. QUETIAPIN ACCORD [Suspect]
     Active Substance: QUETIAPINE
     Indication: DEPRESSION
     Dosage: DOSE: UNKNOWN

REACTIONS (3)
  - Pulmonary embolism [Fatal]
  - Pulmonary infarction [Fatal]
  - Deep vein thrombosis [Fatal]

NARRATIVE: CASE EVENT DATE: 201410
